FAERS Safety Report 10991143 (Version 1)
Quarter: 2015Q2

REPORT INFORMATION
  Report Type: Spontaneous
  Country: GR (occurrence: GR)
  Receive Date: 20150406
  Receipt Date: 20150406
  Transmission Date: 20150821
  Serious: Yes (Death, Hospitalization, Other)
  Sender: FDA-Public Use
  Company Number: GR-TEVA-551553ISR

PATIENT
  Age: 68 Year
  Sex: Male
  Weight: 65 kg

DRUGS (3)
  1. ZARZIO [Concomitant]
     Active Substance: FILGRASTIM
     Dosage: ZARZIO 48
     Route: 058
     Dates: start: 20150211, end: 20150215
  2. PACLITAXEL - TEVA [Suspect]
     Active Substance: PACLITAXEL
     Indication: NON-SMALL CELL LUNG CANCER
     Route: 042
     Dates: start: 20150210, end: 20150210
  3. CARBOPLATIN. [Concomitant]
     Active Substance: CARBOPLATIN
     Dosage: 420 (UNIT UNSPECIFIED)
     Route: 042
     Dates: start: 20150210, end: 20150210

REACTIONS (4)
  - Atrial fibrillation [None]
  - Circulatory collapse [None]
  - Acute hepatic failure [Unknown]
  - Asthenia [None]

NARRATIVE: CASE EVENT DATE: 20150225
